FAERS Safety Report 9861788 (Version 2)
Quarter: 2014Q1

REPORT INFORMATION
  Report Type: Spontaneous
  Country: US (occurrence: US)
  Receive Date: 20140203
  Receipt Date: 20140220
  Transmission Date: 20141002
  Serious: Yes (Death, Life-Threatening, Hospitalization, Other)
  Sender: FDA-Public Use
  Company Number: US-009507513-1401USA014676

PATIENT
  Sex: Male
  Weight: 81.63 kg

DRUGS (5)
  1. JANUVIA [Suspect]
     Indication: TYPE 2 DIABETES MELLITUS
     Dosage: 100 MG, QD
     Route: 048
     Dates: start: 20100702, end: 20110110
  2. JANUVIA [Suspect]
     Dosage: 100 MG, QD
     Route: 048
     Dates: start: 20110114, end: 20110313
  3. GLYBURIDE [Concomitant]
     Indication: TYPE 2 DIABETES MELLITUS
  4. METFORMIN [Concomitant]
     Indication: TYPE 2 DIABETES MELLITUS
  5. LANTUS [Concomitant]
     Indication: TYPE 2 DIABETES MELLITUS
     Dosage: 30 IU, QPM
     Dates: start: 2010

REACTIONS (22)
  - Adenocarcinoma pancreas [Fatal]
  - Metastases to liver [Unknown]
  - Rotator cuff repair [Unknown]
  - Renal disorder [Unknown]
  - Flank pain [Unknown]
  - Haematuria [Unknown]
  - Anxiety [Unknown]
  - Sinus bradycardia [Unknown]
  - Diverticulum intestinal [Unknown]
  - Interstitial lung disease [Unknown]
  - Pulmonary mass [Unknown]
  - Atelectasis [Unknown]
  - Bladder disorder [Unknown]
  - Renal vessel disorder [Unknown]
  - Vascular calcification [Unknown]
  - Hypercholesterolaemia [Unknown]
  - Hypertension [Unknown]
  - Gastrooesophageal reflux disease [Unknown]
  - Coronary artery disease [Unknown]
  - Splenic vein occlusion [Unknown]
  - Coronary angioplasty [Unknown]
  - Rash [Unknown]
